FAERS Safety Report 18590649 (Version 1)
Quarter: 2020Q4

REPORT INFORMATION
  Report Type: Spontaneous
  Country: GB (occurrence: GB)
  Receive Date: 20201208
  Receipt Date: 20201208
  Transmission Date: 20210114
  Serious: Yes (Other)
  Sender: FDA-Public Use
  Company Number: GB-ASTRAZENECA-2020SF60047

PATIENT
  Sex: Male

DRUGS (2)
  1. CALQUENCE [Suspect]
     Active Substance: ACALABRUTINIB
     Route: 048
     Dates: start: 20201124
  2. CALQUENCE [Suspect]
     Active Substance: ACALABRUTINIB
     Route: 048
     Dates: start: 20201030, end: 20201117

REACTIONS (1)
  - Hyposideraemia [Recovered/Resolved]

NARRATIVE: CASE EVENT DATE: 20201116
